FAERS Safety Report 20222563 (Version 2)
Quarter: 2022Q2

REPORT INFORMATION
  Report Type: Spontaneous
  Country: US (occurrence: US)
  Receive Date: 20211223
  Receipt Date: 20220426
  Transmission Date: 20220721
  Serious: Yes (Hospitalization, Disabling, Other)
  Sender: FDA-Public Use
  Company Number: US-ORGANON-1205USA04407

PATIENT
  Sex: Female
  Weight: 64.41 kg

DRUGS (8)
  1. FOSAMAX [Suspect]
     Active Substance: ALENDRONATE SODIUM
     Indication: Osteopenia
     Dosage: 10 MG, UNK
     Route: 048
     Dates: start: 20000913, end: 20100210
  2. FOSAMAX [Suspect]
     Active Substance: ALENDRONATE SODIUM
     Dosage: 70 MG, UNK
     Route: 048
     Dates: start: 20010615
  3. FOSAMAX [Suspect]
     Active Substance: ALENDRONATE SODIUM
     Dosage: 70 MG, UNK
     Route: 048
     Dates: start: 20080502, end: 20080814
  4. BONIVA [Suspect]
     Active Substance: IBANDRONATE SODIUM
     Indication: Osteopenia
     Dosage: 150 MG, UNK
     Route: 048
     Dates: start: 20080814, end: 20100315
  5. LUVOX [Concomitant]
     Active Substance: FLUVOXAMINE MALEATE
     Indication: Anxiety
     Dosage: 100 MG, QD
     Route: 048
     Dates: start: 1986
  6. PRILOSEC [Concomitant]
     Active Substance: OMEPRAZOLE MAGNESIUM
     Dosage: UNK
     Dates: start: 2001
  7. AURANOFIN [Concomitant]
     Active Substance: AURANOFIN
     Dosage: UNK
     Dates: end: 20100510
  8. RIDAURA [Concomitant]
     Active Substance: AURANOFIN
     Dosage: 3 MG, BID
     Route: 048

REACTIONS (56)
  - Osteoporosis [Not Recovered/Not Resolved]
  - Appendicitis perforated [Unknown]
  - Cerebrovascular accident [Unknown]
  - Uterine operation [Unknown]
  - Low turnover osteopathy [Not Recovered/Not Resolved]
  - Hypokalaemia [Unknown]
  - Dehydration [Unknown]
  - Antibiotic associated colitis [Unknown]
  - Cataract operation [Unknown]
  - Lens extraction [Unknown]
  - Stress fracture [Not Recovered/Not Resolved]
  - Femur fracture [Not Recovered/Not Resolved]
  - Femur fracture [Recovering/Resolving]
  - Osteoarthritis [Unknown]
  - Tooth abscess [Unknown]
  - Endodontic procedure [Unknown]
  - Fall [Unknown]
  - Dental prosthesis user [Unknown]
  - Endodontic procedure [Unknown]
  - Denture wearer [Unknown]
  - Dry skin [Unknown]
  - Tooth disorder [Unknown]
  - Pelvic pain [Unknown]
  - Smear cervix abnormal [Unknown]
  - Uterine prolapse [Unknown]
  - Endometrial thickening [Unknown]
  - Diverticulum intestinal [Unknown]
  - Irritable bowel syndrome [Unknown]
  - Osteoarthritis [Unknown]
  - Greater trochanteric pain syndrome [Unknown]
  - Eye pain [Unknown]
  - Sneezing [Unknown]
  - Skin lesion [Unknown]
  - Hypertonic bladder [Unknown]
  - Adrenal adenoma [Unknown]
  - Synovial cyst [Recovering/Resolving]
  - Eustachian tube disorder [Unknown]
  - Urinary tract disorder [Unknown]
  - Osteoarthritis [Unknown]
  - Cerebrovascular disorder [Unknown]
  - Vitamin D deficiency [Unknown]
  - Dermatitis contact [Unknown]
  - Arteriosclerosis [Unknown]
  - Tooth malformation [Unknown]
  - Arthropod bite [Unknown]
  - Drug ineffective [Unknown]
  - Neck pain [Unknown]
  - Oropharyngeal pain [Recovered/Resolved]
  - Anaemia [Unknown]
  - Gastritis [Unknown]
  - Flatulence [Unknown]
  - Headache [Unknown]
  - Constipation [Unknown]
  - Abdominal pain [Unknown]
  - Nausea [Unknown]
  - Bone pain [Unknown]

NARRATIVE: CASE EVENT DATE: 20000101
